FAERS Safety Report 25842237 (Version 1)
Quarter: 2025Q3

REPORT INFORMATION
  Report Type: Spontaneous
  Country: US (occurrence: US)
  Receive Date: 20250924
  Receipt Date: 20250924
  Transmission Date: 20251021
  Serious: No
  Sender: BIOMARIN
  Company Number: US-BIOMARINAP-US-2025-168989

PATIENT
  Age: 6 Month
  Sex: Male

DRUGS (1)
  1. VOXZOGO [Suspect]
     Active Substance: VOSORITIDE
     Indication: Product used for unknown indication

REACTIONS (1)
  - Injection site erythema [Unknown]

NARRATIVE: CASE EVENT DATE: 20250923
